FAERS Safety Report 9340473 (Version 1)
Quarter: 2013Q1

REPORT INFORMATION
  Report Type: Spontaneous
  Country: AT (occurrence: AT)
  Receive Date: 20130206
  Receipt Date: 20130206
  Transmission Date: 20140127
  Serious: Yes (Death)
  Sender: FDA-Public Use
  Company Number: PHHY2013AT011089

PATIENT
  Age: 84 Year
  Sex: Female

DRUGS (2)
  1. EXFORGE HCT [Suspect]
  2. VALSARTAN + HCT [Suspect]

REACTIONS (1)
  - Death [Fatal]
